FAERS Safety Report 18749865 (Version 4)
Quarter: 2021Q3

REPORT INFORMATION
  Report Type: Report from Study
  Country: None (occurrence: US)
  Receive Date: 20210117
  Receipt Date: 20210821
  Transmission Date: 20211014
  Serious: Yes (Other)
  Sender: FDA-Public Use
  Company Number: US-ABBVIE-21K-163-3732154-00

PATIENT
  Sex: Female

DRUGS (1)
  1. RINVOQ [Suspect]
     Active Substance: UPADACITINIB
     Indication: RHEUMATOID ARTHRITIS
     Route: 048
     Dates: end: 20201221

REACTIONS (10)
  - Dry skin [Recovering/Resolving]
  - Skin fissures [Unknown]
  - Blood glucose increased [Recovering/Resolving]
  - Procedural pain [Not Recovered/Not Resolved]
  - Blister [Recovering/Resolving]
  - Colon cancer [Not Recovered/Not Resolved]
  - Nail injury [Unknown]
  - Fatigue [Unknown]
  - Nail infection [Recovering/Resolving]
  - Stomatitis [Recovering/Resolving]
